FAERS Safety Report 16767895 (Version 1)
Quarter: 2019Q3

REPORT INFORMATION
  Report Type: Spontaneous
  Country: US (occurrence: US)
  Receive Date: 20190715
  Receipt Date: 20190715
  Transmission Date: 20191005
  Serious: Yes (Hospitalization)
  Sender: FDA-Public Use
  Company Number: None

PATIENT
  Sex: Female

DRUGS (1)
  1. CAPECITABINE  500MG [Suspect]
     Active Substance: CAPECITABINE
     Indication: COLON CANCER
     Dosage: ?          OTHER FREQUENCY:BID FOR 14 DAYS;?
     Route: 048
     Dates: start: 20190620, end: 20190713

REACTIONS (2)
  - Sepsis [None]
  - Dehydration [None]
